FAERS Safety Report 7960559-4 (Version None)
Quarter: 2011Q4

REPORT INFORMATION
  Report Type: 
  Country: None (occurrence: None)
  Receive Date: 20111206
  Receipt Date: 20111201
  Transmission Date: 20120403
  Serious: Yes (Other)
  Sender: FDA-Public Use
  Company Number: PHHY2011JP82256

PATIENT
  Age: 68 Year
  Sex: Male

DRUGS (1)
  1. ZOMETA [Suspect]
     Indication: MULTIPLE MYELOMA
     Dosage: 4 MG, UNK
     Route: 041
     Dates: start: 20110720, end: 20110824

REACTIONS (2)
  - FEELING ABNORMAL [None]
  - BONE FORMATION INCREASED [None]
